FAERS Safety Report 18699122 (Version 1)
Quarter: 2021Q1

REPORT INFORMATION
  Report Type: Spontaneous
  Country: US (occurrence: US)
  Receive Date: 20210104
  Receipt Date: 20210104
  Transmission Date: 20210419
  Serious: Yes (Other)
  Sender: FDA-Public Use
  Company Number: US-PURDUE-USA-2020-0187300

PATIENT
  Age: 24 Year
  Sex: Female

DRUGS (1)
  1. HYDROMORPHONE TABLET (RHODES) [Suspect]
     Active Substance: HYDROMORPHONE
     Indication: PRODUCT USED FOR UNKNOWN INDICATION
     Dosage: UNK
     Route: 048

REACTIONS (6)
  - Overdose [Unknown]
  - Hepatitis C [Unknown]
  - Exposure during pregnancy [Unknown]
  - Drug dependence [Unknown]
  - Emotional distress [Unknown]
  - Foetal death [Unknown]

NARRATIVE: CASE EVENT DATE: 2016
